FAERS Safety Report 12417742 (Version 3)
Quarter: 2016Q3

REPORT INFORMATION
  Report Type: Spontaneous
  Country: JP (occurrence: JP)
  Receive Date: 20160530
  Receipt Date: 20160831
  Transmission Date: 20161109
  Serious: Yes (Death, Life-Threatening, Hospitalization)
  Sender: FDA-Public Use
  Company Number: JP-ASTRAZENECA-2016SE56990

PATIENT
  Age: 847 Month
  Sex: Female
  Weight: 69 kg

DRUGS (11)
  1. BYETTA [Suspect]
     Active Substance: EXENATIDE
     Indication: TYPE 2 DIABETES MELLITUS
     Dosage: 5UG, TWICE DAILY
     Route: 058
     Dates: start: 20120604, end: 20120923
  2. VICTOZA [Suspect]
     Active Substance: LIRAGLUTIDE
     Indication: TYPE 2 DIABETES MELLITUS
     Dates: start: 20140210
  3. METGLUCO [Concomitant]
     Active Substance: METFORMIN HYDROCHLORIDE
     Indication: TYPE 2 DIABETES MELLITUS
     Route: 048
  4. VICTOZA [Suspect]
     Active Substance: LIRAGLUTIDE
     Indication: TYPE 2 DIABETES MELLITUS
     Dates: start: 20110221, end: 20120603
  5. AMARYL [Concomitant]
     Active Substance: GLIMEPIRIDE
     Indication: TYPE 2 DIABETES MELLITUS
     Route: 048
  6. BYETTA [Suspect]
     Active Substance: EXENATIDE
     Indication: TYPE 2 DIABETES MELLITUS
     Dosage: 5 UG, TWICE DAILY
     Route: 058
     Dates: start: 20130304, end: 20140209
  7. OLMETEC [Concomitant]
     Active Substance: OLMESARTAN MEDOXOMIL
     Indication: HYPERTENSION
     Route: 048
  8. BASEN [Concomitant]
     Active Substance: VOGLIBOSE
     Indication: TYPE 2 DIABETES MELLITUS
     Route: 048
  9. CADUET NO.4 [Concomitant]
     Indication: HYPERTENSION
     Route: 048
  10. GLIMICRON [Concomitant]
     Active Substance: GLICLAZIDE
     Dates: start: 2005
  11. BYETTA [Suspect]
     Active Substance: EXENATIDE
     Indication: TYPE 2 DIABETES MELLITUS
     Dosage: 10 UG, TWICE DAILY
     Route: 058
     Dates: start: 20120924, end: 20130303

REACTIONS (7)
  - Hypercalcaemia [Fatal]
  - Metastases to liver [Fatal]
  - Glycosylated haemoglobin increased [Unknown]
  - Haemangioma [Unknown]
  - Nausea [Recovered/Resolved]
  - Pancreatic carcinoma metastatic [Fatal]
  - Ventricular tachycardia [Unknown]

NARRATIVE: CASE EVENT DATE: 201303
